FAERS Safety Report 5614460-1 (Version None)
Quarter: 2008Q1

REPORT INFORMATION
  Report Type: 
  Country: None (occurrence: None)
  Receive Date: 20080111
  Receipt Date: 20070810
  Transmission Date: 20080703
  Serious: Yes (Other)
  Sender: FDA-Public Use
  Company Number: HQWYE778821JAN05

PATIENT
  Age: 53 Year
  Sex: Female
  Weight: 132.11 kg

DRUGS (2)
  1. PREMPRO [Suspect]
     Dosage: ORAL
     Route: 048
     Dates: start: 19990101, end: 20030101
  2. AVAPRO [Concomitant]

REACTIONS (1)
  - BREAST CANCER [None]
